FAERS Safety Report 6568506-7 (Version None)
Quarter: 2010Q1

REPORT INFORMATION
  Report Type: 
  Country: None (occurrence: None)
  Receive Date: 20100203
  Receipt Date: 20100127
  Transmission Date: 20100710
  Serious: Yes (Other)
  Sender: FDA-Public Use
  Company Number: D0062981A

PATIENT
  Sex: Female
  Weight: 56 kg

DRUGS (1)
  1. MALARONE [Suspect]
     Indication: PROPHYLAXIS
     Route: 048

REACTIONS (5)
  - ABSCESS LIMB [None]
  - INCISION SITE ABSCESS [None]
  - NAIL DISORDER [None]
  - PAIN IN EXTREMITY [None]
  - PARONYCHIA [None]
